FAERS Safety Report 16015729 (Version 7)
Quarter: 2019Q3

REPORT INFORMATION
  Report Type: Report from Study
  Country: US (occurrence: US)
  Receive Date: 20190228
  Receipt Date: 20190905
  Transmission Date: 20191004
  Serious: Yes (Other)
  Sender: FDA-Public Use
  Company Number: US-PFIZER INC-2019064841

PATIENT
  Age: 43 Year
  Sex: Female

DRUGS (6)
  1. IBRANCE [Suspect]
     Active Substance: PALBOCICLIB
     Dosage: 100 MG, CYCLIC
     Route: 048
     Dates: start: 20190608, end: 20190610
  2. IBRANCE [Suspect]
     Active Substance: PALBOCICLIB
     Dosage: 100 MG, DAILY
     Route: 048
     Dates: start: 201904
  3. FEMARA [Suspect]
     Active Substance: LETROZOLE
     Dosage: UNK
  4. IBRANCE [Suspect]
     Active Substance: PALBOCICLIB
     Indication: BREAST CANCER FEMALE
     Dosage: 125 MG, CYCLIC (DAILY, 21 DAYS, THEN 7 DAYS OFF)
     Route: 048
     Dates: start: 20190201
  5. IBRANCE [Suspect]
     Active Substance: PALBOCICLIB
     Dosage: 100 MG, UNK
     Route: 048
     Dates: start: 20190611
  6. IBRANCE [Suspect]
     Active Substance: PALBOCICLIB
     Dosage: 75 MG, CYCLIC (DAILY FOR 21 DAYS OF 28 DAY CYCLE)
     Route: 048
     Dates: start: 20190702

REACTIONS (14)
  - Bone marrow failure [Unknown]
  - Leukopenia [Recovering/Resolving]
  - Decreased appetite [Unknown]
  - Nausea [Recovered/Resolved]
  - Paraesthesia [Unknown]
  - Neuropathy peripheral [Unknown]
  - Pain [Unknown]
  - Diarrhoea [Unknown]
  - Rash pruritic [Recovered/Resolved]
  - Fatigue [Recovering/Resolving]
  - Neoplasm progression [Unknown]
  - Chills [Unknown]
  - Hypoaesthesia [Unknown]
  - Product dose omission [Unknown]

NARRATIVE: CASE EVENT DATE: 2019
